FAERS Safety Report 6122060-2 (Version None)
Quarter: 2009Q1

REPORT INFORMATION
  Report Type: 
  Country: None (occurrence: None)
  Receive Date: 20090313
  Receipt Date: 20090313
  Transmission Date: 20090719
  Serious: No
  Sender: FDA-Public Use
  Company Number: None

PATIENT
  Age: 80 Year
  Sex: Male

DRUGS (2)
  1. CARVEDILOL [Suspect]
     Indication: CARDIAC FAILURE CONGESTIVE
     Dosage: 6.25 MG BID PO
     Route: 048
     Dates: start: 20081210, end: 20090311
  2. CARVEDILOL [Suspect]
     Indication: HYPERTENSION
     Dosage: 6.25 MG BID PO
     Route: 048
     Dates: start: 20081210, end: 20090311

REACTIONS (1)
  - ATRIOVENTRICULAR BLOCK COMPLETE [None]
